FAERS Safety Report 15283457 (Version 1)
Quarter: 2018Q3

REPORT INFORMATION
  Report Type: Spontaneous
  Country: US (occurrence: US)
  Receive Date: 20180731
  Receipt Date: 20180731
  Transmission Date: 20181010
  Serious: No
  Sender: FDA-Public Use
  Company Number: None

PATIENT
  Age: 54 Year
  Sex: Female

DRUGS (1)
  1. HUMIRA [Suspect]
     Active Substance: ADALIMUMAB
     Indication: RHEUMATOID ARTHRITIS
     Route: 058
     Dates: start: 20150827

REACTIONS (5)
  - Exostosis [None]
  - Joint swelling [None]
  - Oedema peripheral [None]
  - Spinal column stenosis [None]
  - Sciatica [None]

NARRATIVE: CASE EVENT DATE: 20180728
